FAERS Safety Report 9413141 (Version 1)
Quarter: 2013Q3

REPORT INFORMATION
  Report Type: Spontaneous
  Country: TN (occurrence: TN)
  Receive Date: 20130722
  Receipt Date: 20130722
  Transmission Date: 20140515
  Serious: Yes (Hospitalization)
  Sender: FDA-Public Use
  Company Number: ALCN2013TN000632

PATIENT
  Sex: Male

DRUGS (1)
  1. TRAVATAN 0.004 % OPHTHALMIC SOLUTION (TRAVATAN POLYQUAD 0.004%) [Suspect]
     Route: 047

REACTIONS (3)
  - Palpitations [Recovered/Resolved]
  - Arrhythmia [Recovered/Resolved]
  - Respiratory disorder [Recovered/Resolved]
